FAERS Safety Report 5520421-3 (Version None)
Quarter: 2007Q4

REPORT INFORMATION
  Report Type: 
  Country: None (occurrence: None)
  Receive Date: 20071119
  Receipt Date: 20071112
  Transmission Date: 20080405
  Serious: Yes (Other)
  Sender: FDA-Public Use
  Company Number: GB-ELI_LILLY_AND_COMPANY-GB200711003176

PATIENT
  Age: 83 Year
  Sex: Male

DRUGS (8)
  1. OLANZAPINE [Suspect]
     Indication: DEMENTIA
     Dosage: 5 MG, DAILY (1/D)
     Route: 048
     Dates: start: 20070620, end: 20070821
  2. DIPYRIDAMOLE [Concomitant]
     Indication: CEREBROVASCULAR ACCIDENT
     Dosage: 200 MG, 2/D
     Route: 048
  3. LORAZEPAM [Concomitant]
     Indication: AGITATION
     Dosage: UNK, AS NEEDED
     Route: 048
     Dates: start: 20070703
  4. MEMANTINE HCL [Concomitant]
     Indication: DEMENTIA
     Dosage: 10 MG, 2/D
     Route: 048
     Dates: start: 20070717
  5. MIRTAZAPINE [Concomitant]
     Indication: DEPRESSION
     Dosage: 15 MG, DAILY (1/D)
     Route: 048
     Dates: start: 20070701, end: 20070903
  6. MIRTAZAPINE [Concomitant]
     Dosage: 30 MG, DAILY (1/D)
     Route: 048
     Dates: start: 20070904
  7. QUININE SULFATE [Concomitant]
     Indication: MUSCLE SPASMS
     Dosage: 3.75 MG, AS NEEDED
     Route: 048
     Dates: end: 20070904
  8. ZOPICLONE [Concomitant]
     Indication: INSOMNIA
     Dosage: 3.75 MG, AS NEEDED
     Route: 048

REACTIONS (5)
  - CARDIOVASCULAR DISORDER [None]
  - ELECTROCARDIOGRAM QT PROLONGED [None]
  - FALL [None]
  - FLUID RETENTION [None]
  - MOBILITY DECREASED [None]
